FAERS Safety Report 4549075-X (Version None)
Quarter: 2005Q1

REPORT INFORMATION
  Report Type: 
  Country: None (occurrence: None)
  Receive Date: 20050110
  Receipt Date: 20041119
  Transmission Date: 20050727
  Serious: Yes (Death, Hospitalization)
  Sender: FDA-Public Use
  Company Number: FR-MERCK-0411FRA00084

PATIENT
  Age: 73 Year
  Sex: Female

DRUGS (11)
  1. SINGULAIR [Suspect]
     Indication: BRONCHITIS CHRONIC
     Route: 048
     Dates: end: 20040929
  2. PAROXETINE HYDROCHLORIDE [Suspect]
     Indication: DEPRESSION
     Route: 048
     Dates: end: 20040929
  3. CLOPIDOGREL BISULFATE [Suspect]
     Route: 048
     Dates: end: 20040926
  4. SPIRONOLACTONE [Concomitant]
     Indication: HYPERTENSION
     Route: 048
  5. URAPIDIL [Concomitant]
     Indication: HYPERTENSION
     Route: 048
  6. VERAPAMIL HYDROCHLORIDE [Concomitant]
     Indication: HYPERTENSION
     Route: 048
  7. ALLOPURINOL [Concomitant]
     Route: 065
  8. CALCIUM CARBONATE AND CHOLECALCIFEROL [Concomitant]
     Indication: OSTEOPOROSIS
     Route: 065
  9. [THERAPY UNSPECIFIED] [Concomitant]
     Indication: OSTEOARTHRITIS
     Route: 065
  10. METOPIMAZINE [Concomitant]
     Route: 065
  11. BUDESONIDE AND FORMOTEROL FUMARATE [Concomitant]
     Route: 065

REACTIONS (1)
  - CEREBRAL HAEMATOMA [None]
